FAERS Safety Report 13834714 (Version 1)
Quarter: 2017Q3

REPORT INFORMATION
  Report Type: Spontaneous
  Country: US (occurrence: US)
  Receive Date: 20170804
  Receipt Date: 20170804
  Transmission Date: 20171127
  Serious: No
  Sender: FDA-Public Use
  Company Number: US-ASTRAZENECA-2017SE77129

PATIENT
  Age: 52 Year
  Sex: Female
  Weight: 97.5 kg

DRUGS (8)
  1. PRILOSEC [Suspect]
     Active Substance: OMEPRAZOLE MAGNESIUM
     Indication: GASTROOESOPHAGEAL REFLUX DISEASE
     Dosage: DAILY
     Route: 048
     Dates: start: 2014, end: 2014
  2. NEXIUM [Suspect]
     Active Substance: ESOMEPRAZOLE MAGNESIUM
     Indication: GASTROOESOPHAGEAL REFLUX DISEASE
     Route: 048
     Dates: start: 2014, end: 2017
  3. CHLOROTHIAZIDE. [Concomitant]
     Active Substance: CHLOROTHIAZIDE
     Indication: SWELLING
     Route: 048
     Dates: start: 2015
  4. METFORMIN [Concomitant]
     Active Substance: METFORMIN HYDROCHLORIDE
     Indication: DIABETES MELLITUS
     Route: 048
  5. MECLIZINE [Concomitant]
     Active Substance: MECLIZINE HYDROCHLORIDE
     Indication: DIZZINESS
     Route: 048
     Dates: start: 2013
  6. NEXIUM 24HR [Suspect]
     Active Substance: ESOMEPRAZOLE MAGNESIUM
     Indication: GASTROOESOPHAGEAL REFLUX DISEASE
     Route: 048
     Dates: start: 201706, end: 20170705
  7. LOSARTAN. [Concomitant]
     Active Substance: LOSARTAN
     Indication: BLOOD PRESSURE MEASUREMENT
     Route: 048
     Dates: start: 201606
  8. CHLOROTHIAZIDE. [Concomitant]
     Active Substance: CHLOROTHIAZIDE
     Indication: BLOOD PRESSURE MEASUREMENT
     Route: 048
     Dates: start: 2015

REACTIONS (13)
  - Carpal tunnel syndrome [Unknown]
  - Abdominal discomfort [Not Recovered/Not Resolved]
  - Feeding disorder [Not Recovered/Not Resolved]
  - Cardiomegaly [Unknown]
  - Hiatus hernia [Unknown]
  - Peripheral swelling [Unknown]
  - Drug ineffective [Unknown]
  - Musculoskeletal disorder [Unknown]
  - Chondropathy [Unknown]
  - Ulcer [Unknown]
  - Movement disorder [Unknown]
  - Blood pressure increased [Unknown]
  - Arthritis [Unknown]

NARRATIVE: CASE EVENT DATE: 2014
